FAERS Safety Report 22277360 (Version 1)
Quarter: 2023Q2

REPORT INFORMATION
  Report Type: Spontaneous
  Country: US (occurrence: US)
  Receive Date: 20230503
  Receipt Date: 20230503
  Transmission Date: 20230722
  Serious: Yes (Other)
  Sender: FDA-Public Use
  Company Number: US-BRISTOL-MYERS SQUIBB COMPANY-2023-059823

PATIENT
  Age: 66 Year
  Sex: Female
  Weight: 147 kg

DRUGS (1)
  1. REVLIMID [Suspect]
     Active Substance: LENALIDOMIDE
     Indication: Plasma cell myeloma
     Route: 048
     Dates: start: 20191009

REACTIONS (2)
  - Plasma cell myeloma [Not Recovered/Not Resolved]
  - Full blood count abnormal [Not Recovered/Not Resolved]
